FAERS Safety Report 12425418 (Version 2)
Quarter: 2016Q3

REPORT INFORMATION
  Report Type: Spontaneous
  Country: US (occurrence: US)
  Receive Date: 20160601
  Receipt Date: 20160831
  Transmission Date: 20161109
  Serious: No
  Sender: FDA-Public Use
  Company Number: US-MYLANLABS-2016M1018671

PATIENT
  Sex: Female

DRUGS (2)
  1. LIDOCAINE PATCH [Suspect]
     Active Substance: LIDOCAINE
     Indication: PAIN
     Dosage: 1 DF, QD APPLY TO AREA OF PAIN FOR 12 HOURS, REMOVE AND WAIT 12 HOURS TO APPLY NEW PATCH
  2. LIDOCAINE PATCH [Suspect]
     Active Substance: LIDOCAINE
     Indication: OFF LABEL USE

REACTIONS (2)
  - Drug ineffective for unapproved indication [Not Recovered/Not Resolved]
  - Product quality issue [Not Recovered/Not Resolved]
